FAERS Safety Report 7009274-4 (Version None)
Quarter: 2010Q3

REPORT INFORMATION
  Report Type: 
  Country: None (occurrence: None)
  Receive Date: 20100923
  Receipt Date: 20100914
  Transmission Date: 20110219
  Serious: Yes (Hospitalization)
  Sender: FDA-Public Use
  Company Number: IN-BRISTOL-MYERS SQUIBB COMPANY-15285695

PATIENT
  Age: 72 Year
  Sex: Male
  Weight: 44 kg

DRUGS (9)
  1. ETOPOSIDE [Suspect]
     Indication: NON-SMALL CELL LUNG CANCER STAGE III
     Dosage: 70MG D1-D5.DOSE REDUCED TO 52.5MG D1-D5 FROM 16AUG2010-ONGOING.LAST DOSE ON 20AUG2010
     Route: 042
     Dates: start: 20100719
  2. CISPLATIN [Suspect]
     Indication: NON-SMALL CELL LUNG CANCER STAGE III
     Dosage: 70MG .DOSE REDUCED TO 52.5MG D1-D8 FROM 16AUG2010-ONGOING.LAST DOSE ON 24AUG2010
     Route: 042
     Dates: start: 20100719
  3. RADIATION THERAPY [Suspect]
     Indication: NON-SMALL CELL LUNG CANCER STAGE III
     Dosage: 1DF=1GY IN 32 FRACTIONS.LAST DOSE ON 27AUG2010
     Dates: start: 20100719
  4. AMLODIPINE [Concomitant]
     Indication: HYPERTENSION
  5. THEOPHYLLINE [Concomitant]
     Indication: DYSPNOEA
     Dates: start: 20100618
  6. GRANISETRON HCL [Concomitant]
     Indication: INTERMITTENT CLAUDICATION
     Dates: start: 20100816
  7. TRENTAL [Concomitant]
     Indication: INTERMITTENT CLAUDICATION
     Dates: start: 20100730
  8. ECOSPRIN [Concomitant]
     Indication: INTERMITTENT CLAUDICATION
     Dates: start: 20100730
  9. ATORVA [Concomitant]
     Indication: INTERMITTENT CLAUDICATION
     Dates: start: 20100730

REACTIONS (4)
  - DYSPHAGIA [None]
  - NEUTROPENIA [None]
  - THROMBOCYTOPENIA [None]
  - VOMITING [None]
